FAERS Safety Report 7354857-5 (Version None)
Quarter: 2011Q1

REPORT INFORMATION
  Report Type: 
  Country: None (occurrence: None)
  Receive Date: 20110311
  Receipt Date: 20110311
  Transmission Date: 20110831
  Serious: Yes (Disabling)
  Sender: FDA-Public Use
  Company Number: None

PATIENT
  Sex: Female

DRUGS (4)
  1. OXYCODONE HCL AND ACETAMINOPHEN [Concomitant]
  2. EPIDURAL STEROID INJECTIONS [Concomitant]
  3. FENTANYL [Suspect]
     Indication: BACK PAIN
     Dosage: 100 MCG EVERY 48 HRS
  4. FENTANYL [Suspect]
     Indication: ARTHRITIS
     Dosage: 100 MCG EVERY 48 HRS

REACTIONS (3)
  - DRUG EFFECT DECREASED [None]
  - SOMNOLENCE [None]
  - GAIT DISTURBANCE [None]
